FAERS Safety Report 6734638-3 (Version None)
Quarter: 2010Q2

REPORT INFORMATION
  Report Type: 
  Country: None (occurrence: None)
  Receive Date: 20100520
  Receipt Date: 20100519
  Transmission Date: 20101027
  Serious: No
  Sender: FDA-Public Use
  Company Number: US-B.I. PHARMACEUTICALS,INC./RIDGEFIELD-2010-BP-05724BP

PATIENT
  Sex: Male

DRUGS (5)
  1. SPIRIVA [Suspect]
     Indication: CHRONIC OBSTRUCTIVE PULMONARY DISEASE
     Dosage: 18 MCG
     Route: 055
     Dates: start: 20100430
  2. PLAVIX [Concomitant]
     Indication: CARDIAC DISORDER
     Dates: start: 20090101
  3. SIMVASTATIN [Concomitant]
     Indication: CARDIAC DISORDER
     Dates: start: 20090101
  4. DIOVAN [Concomitant]
     Indication: HYPERTENSION
  5. CARVEDILOL [Concomitant]
     Indication: CARDIAC DISORDER
     Dates: start: 20090101

REACTIONS (2)
  - BUCCAL MUCOSAL ROUGHENING [None]
  - DYSGEUSIA [None]
